FAERS Safety Report 5635889-1 (Version None)
Quarter: 2008Q1

REPORT INFORMATION
  Report Type: 
  Country: None (occurrence: None)
  Receive Date: 20080221
  Receipt Date: 20080206
  Transmission Date: 20080703
  Serious: Yes (Hospitalization)
  Sender: FDA-Public Use
  Company Number: 2008S1002239

PATIENT
  Age: 77 Year
  Sex: Female

DRUGS (6)
  1. ACYCLOVIR [Suspect]
     Indication: HERPES ZOSTER
     Dosage: 800 MG; ORAL; TWICE A DAY, 800 MG; TWICE A DAY, ORAL
     Route: 048
  2. NIFEDIPINE ER (NIFEDIPINE) [Concomitant]
  3. FLUOXETINE [Concomitant]
  4. OMEPRAZOLE [Concomitant]
  5. ERYTHROPOIETIN (ERYTHROPOIETIN) [Concomitant]
  6. IRON (IRON) [Concomitant]

REACTIONS (9)
  - BLOOD ALBUMIN DECREASED [None]
  - BLOOD CREATINE INCREASED [None]
  - BLOOD GLUCOSE INCREASED [None]
  - BLOOD SODIUM DECREASED [None]
  - COMA [None]
  - HAEMODIALYSIS [None]
  - HAEMOGLOBIN DECREASED [None]
  - NEUROTOXICITY [None]
  - PNEUMONIA ASPIRATION [None]
